FAERS Safety Report 12887093 (Version 2)
Quarter: 2016Q4

REPORT INFORMATION
  Report Type: Spontaneous
  Country: IT (occurrence: IT)
  Receive Date: 20161026
  Receipt Date: 20161102
  Transmission Date: 20170207
  Serious: Yes (Other)
  Sender: FDA-Public Use
  Company Number: IT-GLAXOSMITHKLINE-IT2016GSK156208

PATIENT
  Age: 40 Year
  Sex: Female

DRUGS (2)
  1. LAROXYL [Suspect]
     Active Substance: AMITRIPTYLINE
     Indication: INTENTIONAL SELF-INJURY
     Dosage: 20 ML, UNK
     Route: 048
     Dates: start: 20150622
  2. LAMICTAL [Suspect]
     Active Substance: LAMOTRIGINE
     Indication: INTENTIONAL SELF-INJURY
     Dosage: 750 MG, UNK
     Route: 048
     Dates: start: 20150622

REACTIONS (2)
  - Drug abuse [Recovering/Resolving]
  - Sopor [Recovering/Resolving]

NARRATIVE: CASE EVENT DATE: 20150622
